FAERS Safety Report 8998434 (Version 2)
Quarter: 2013Q1

REPORT INFORMATION
  Report Type: Report from Study
  Country: FR (occurrence: FR)
  Receive Date: 20130103
  Receipt Date: 20130201
  Transmission Date: 20140127
  Serious: Yes (Life-Threatening, Hospitalization)
  Sender: FDA-Public Use
  Company Number: FR-ROCHE-1170749

PATIENT
  Age: 45 Year
  Sex: Female
  Weight: 55 kg

DRUGS (4)
  1. PERTUZUMAB [Suspect]
     Indication: BREAST CANCER
     Dosage: DATE OF LAST DOSE PRIOR TO SAE: 14/DEC/2012
     Route: 042
     Dates: start: 20121214, end: 20121220
  2. TRASTUZUMAB [Suspect]
     Indication: BREAST CANCER
     Dosage: LAST DOSE PRIOR TO SAE WAS ON 14/DEC/2012
     Route: 042
     Dates: start: 20121214, end: 20121220
  3. NAVELBINE [Suspect]
     Indication: BREAST CANCER
     Dosage: D1-D8
     Route: 042
     Dates: start: 20121214, end: 20121214
  4. SKENAN [Concomitant]
     Route: 065
     Dates: start: 20121215

REACTIONS (1)
  - Bronchospasm [Recovered/Resolved]
